FAERS Safety Report 21213838 (Version 1)
Quarter: 2022Q3

REPORT INFORMATION
  Report Type: Spontaneous
  Country: US (occurrence: US)
  Receive Date: 20220816
  Receipt Date: 20220816
  Transmission Date: 20221027
  Serious: Yes (Death, Other)
  Sender: FDA-Public Use
  Company Number: US-AMGEN-USASP2022136753

PATIENT

DRUGS (3)
  1. PEGFILGRASTIM [Suspect]
     Active Substance: PEGFILGRASTIM
     Indication: Hepatitis alcoholic
     Dosage: 0.6 MILLIGRAM
     Route: 058
  2. PENTOXIFYLLINE [Concomitant]
     Active Substance: PENTOXIFYLLINE
  3. PREDNISOLONE [Concomitant]
     Active Substance: PREDNISOLONE

REACTIONS (5)
  - Death [Fatal]
  - Acute kidney injury [Unknown]
  - Hepatorenal syndrome [Unknown]
  - Hepatic encephalopathy [Unknown]
  - Infection [Unknown]
